FAERS Safety Report 15210687 (Version 1)
Quarter: 2018Q3

REPORT INFORMATION
  Report Type: Report from Study
  Country: FR (occurrence: FR)
  Receive Date: 20180728
  Receipt Date: 20180728
  Transmission Date: 20181010
  Serious: Yes (Hospitalization)
  Sender: FDA-Public Use
  Company Number: FR-TEVA-2018-FR-930983

PATIENT
  Age: 86 Year
  Sex: Female
  Weight: 54 kg

DRUGS (4)
  1. FLUOROURACIL. [Suspect]
     Active Substance: FLUOROURACIL
     Route: 041
     Dates: start: 20170718
  2. ELVORINE [Suspect]
     Active Substance: LEUCOVORIN CALCIUM
     Indication: COLORECTAL CANCER METASTATIC
     Route: 065
     Dates: start: 20170718
  3. AVASTIN [Suspect]
     Active Substance: BEVACIZUMAB
     Indication: COLORECTAL CANCER METASTATIC
     Route: 065
     Dates: start: 20170919
  4. FLUOROURACIL. [Suspect]
     Active Substance: FLUOROURACIL
     Indication: COLORECTAL CANCER METASTATIC
     Route: 040
     Dates: start: 20170718

REACTIONS (3)
  - Escherichia bacteraemia [Recovered/Resolved]
  - Diarrhoea [Recovered/Resolved]
  - General physical health deterioration [Recovered/Resolved]

NARRATIVE: CASE EVENT DATE: 20170923
